FAERS Safety Report 19766960 (Version 1)
Quarter: 2021Q3

REPORT INFORMATION
  Report Type: Spontaneous
  Country: US (occurrence: US)
  Receive Date: 20210826
  Receipt Date: 20210826
  Transmission Date: 20211014
  Serious: Yes (Hospitalization)
  Sender: FDA-Public Use
  Company Number: None

PATIENT
  Sex: Male

DRUGS (2)
  1. TASIGNA [Suspect]
     Active Substance: NILOTINIB
     Indication: PRODUCT USED FOR UNKNOWN INDICATION
     Dosage: 200MG 1 CAPSULE ONCE DAILY ORAL
     Route: 048
     Dates: start: 20160319
  2. TASIGNA [Suspect]
     Active Substance: NILOTINIB
     Indication: CHRONIC MYELOID LEUKAEMIA
     Dosage: 200MG 1 CAPSULE ONCE DAILY ORAL
     Route: 048
     Dates: start: 20160319

REACTIONS (3)
  - Abdominal pain upper [None]
  - Chest pain [None]
  - Colitis ulcerative [None]
